FAERS Safety Report 17260663 (Version 1)
Quarter: 2020Q1

REPORT INFORMATION
  Report Type: Spontaneous
  Country: CA (occurrence: CA)
  Receive Date: 20200113
  Receipt Date: 20200113
  Transmission Date: 20200409
  Serious: Yes (Other)
  Sender: FDA-Public Use
  Company Number: CA-SA-2020SA006346

PATIENT
  Sex: Female

DRUGS (5)
  1. LEFLUNOMIDE. [Suspect]
     Active Substance: LEFLUNOMIDE
     Dosage: UNK UNK, UNK
     Route: 048
  2. HUMIRA [Concomitant]
     Active Substance: ADALIMUMAB
     Dosage: UNK
     Route: 065
  3. SIMPONI [Concomitant]
     Active Substance: GOLIMUMAB
     Dosage: UNK
     Route: 065
  4. METHOTREXATE. [Concomitant]
     Active Substance: METHOTREXATE
     Dosage: UNK
     Route: 065
  5. PLAQUENIL [Suspect]
     Active Substance: HYDROXYCHLOROQUINE SULFATE
     Dosage: UNK UNK, UNK
     Route: 048

REACTIONS (2)
  - Rheumatoid arthritis [Unknown]
  - Joint swelling [Unknown]
